FAERS Safety Report 5039350-7 (Version None)
Quarter: 2006Q2

REPORT INFORMATION
  Report Type: 
  Country: None (occurrence: None)
  Receive Date: 20060629
  Receipt Date: 20060614
  Transmission Date: 20061013
  Serious: Yes (Hospitalization)
  Sender: FDA-Public Use
  Company Number: FR-JNJFOC-20060605839

PATIENT
  Age: 84 Year
  Sex: Male

DRUGS (7)
  1. ZALDIAR [Suspect]
     Indication: PATHOLOGICAL FRACTURE
     Route: 065
  2. PREVISCAN [Interacting]
     Indication: ATRIAL FIBRILLATION
     Route: 065
  3. CORDARONE [Concomitant]
     Indication: ATRIAL FIBRILLATION
     Route: 065
  4. PERMIXON [Concomitant]
     Route: 065
  5. TRIATEC [Concomitant]
     Route: 065
  6. FORLAX [Concomitant]
     Route: 065
  7. MAGNE-B6 [Concomitant]
     Route: 065

REACTIONS (5)
  - DRUG INTERACTION [None]
  - HAEMATURIA [None]
  - INTERNATIONAL NORMALISED RATIO INCREASED [None]
  - PROTHROMBIN LEVEL DECREASED [None]
  - RECTAL HAEMORRHAGE [None]
